FAERS Safety Report 4326846-6 (Version None)
Quarter: 2004Q1

REPORT INFORMATION
  Report Type: 
  Country: None (occurrence: None)
  Receive Date: 20040330
  Receipt Date: 20040330
  Transmission Date: 20041129
  Serious: Yes (Life-Threatening)
  Sender: FDA-Public Use
  Company Number: None

PATIENT
  Sex: Male
  Weight: 94.076 kg

DRUGS (10)
  1. DAUNORUBICIN [Suspect]
     Indication: ACUTE MYELOID LEUKAEMIA
     Dosage: 168 MG IV X 3 DAYS
     Route: 042
     Dates: start: 20040206, end: 20040208
  2. CYTARABINE [Suspect]
     Indication: ACUTE MYELOID LEUKAEMIA
     Dosage: 190 MG IV DAILY X 7
     Route: 042
     Dates: start: 20040206, end: 20040212
  3. CELEBREX [Concomitant]
  4. FLOMAX [Concomitant]
  5. ACYCLOVIR [Concomitant]
  6. COMBIVENT INH [Concomitant]
  7. DIFLUCAN [Concomitant]
  8. LEVOFLOXACIN [Concomitant]
  9. ALLOPURINOL [Concomitant]
  10. DOLASETRON [Concomitant]

REACTIONS (6)
  - DEPRESSED LEVEL OF CONSCIOUSNESS [None]
  - HYPOTENSION [None]
  - MYOSITIS [None]
  - SEPTIC SHOCK [None]
  - TACHYCARDIA [None]
  - TRANSFUSION REACTION [None]
